FAERS Safety Report 8464745-9 (Version None)
Quarter: 2012Q2

REPORT INFORMATION
  Report Type: 
  Country: None (occurrence: None)
  Receive Date: 20120626
  Receipt Date: 20120621
  Transmission Date: 20120825
  Serious: No
  Sender: FDA-Public Use
  Company Number: US-PFIZER INC-2012151115

PATIENT
  Sex: Female

DRUGS (10)
  1. METOPROLOL [Concomitant]
     Dosage: UNK
  2. FUROSEMIDE [Concomitant]
     Dosage: UNK
  3. PREDNISONE [Concomitant]
     Dosage: UNK
  4. AMLODIPINE [Concomitant]
  5. NITROGLYCERIN [Concomitant]
     Dosage: UNK
  6. ROSUVASTATIN [Concomitant]
     Dosage: UNK
  7. ACETYLSALICYLIC ACID [Concomitant]
     Dosage: UNK
  8. ARGATROBAN [Suspect]
     Indication: HEPARIN-INDUCED THROMBOCYTOPENIA
     Dosage: 10 MCG/KG/MIN
     Route: 042
     Dates: start: 20120620
  9. ARGATROBAN [Suspect]
     Indication: ACUTE MYOCARDIAL INFARCTION
  10. PANTOPRAZOLE [Concomitant]
     Dosage: UNK

REACTIONS (1)
  - ACTIVATED PARTIAL THROMBOPLASTIN TIME ABNORMAL [None]
